FAERS Safety Report 5774358-5 (Version None)
Quarter: 2008Q2

REPORT INFORMATION
  Report Type: 
  Country: None (occurrence: None)
  Receive Date: 20080616
  Receipt Date: 20080604
  Transmission Date: 20081010
  Serious: No
  Sender: FDA-Public Use
  Company Number: US-PFIZER INC-2007079628

PATIENT
  Sex: Female
  Weight: 57.727 kg

DRUGS (10)
  1. NEURONTIN [Suspect]
     Dates: start: 19960205, end: 19960301
  2. LYRICA [Suspect]
     Indication: FIBROMYALGIA
     Route: 048
  3. LYRICA [Suspect]
     Indication: NEUROPATHY PERIPHERAL
  4. LYRICA [Suspect]
     Indication: RESTLESS LEGS SYNDROME
  5. CLONAZEPAM [Suspect]
     Indication: SLEEP DISORDER
  6. CLONAZEPAM [Suspect]
     Indication: INSOMNIA
  7. METHADONE HCL [Suspect]
     Indication: PAIN
  8. ULTRAM [Suspect]
  9. FOSAMAX [Concomitant]
  10. SOMA [Concomitant]

REACTIONS (9)
  - DIZZINESS [None]
  - DRY MOUTH [None]
  - ECZEMA [None]
  - IMPAIRED DRIVING ABILITY [None]
  - MUSCLE SPASMS [None]
  - RASH [None]
  - RESTLESS LEGS SYNDROME [None]
  - SLEEP DISORDER [None]
  - TOOTH DISORDER [None]
